FAERS Safety Report 16798935 (Version 1)
Quarter: 2019Q3

REPORT INFORMATION
  Report Type: Spontaneous
  Country: US (occurrence: US)
  Receive Date: 20190722
  Receipt Date: 20190722
  Transmission Date: 20191005
  Serious: No
  Sender: FDA-Public Use
  Company Number: None

PATIENT

DRUGS (1)
  1. MUPIROCIN OINTMENT 2% 22 GRAMS [Suspect]
     Active Substance: MUPIROCIN
     Indication: BLOOD TEST
     Route: 045
     Dates: start: 20190215, end: 20190220

REACTIONS (3)
  - Product use issue [None]
  - Product label confusion [None]
  - Product substitution issue [None]

NARRATIVE: CASE EVENT DATE: 20190215
